FAERS Safety Report 6903023-3 (Version None)
Quarter: 2010Q3

REPORT INFORMATION
  Report Type: 
  Country: None (occurrence: None)
  Receive Date: 20100803
  Receipt Date: 20080820
  Transmission Date: 20110219
  Serious: No
  Sender: FDA-Public Use
  Company Number: US-PFIZER INC-2008069787

PATIENT
  Sex: Female

DRUGS (1)
  1. LYRICA [Suspect]
     Dosage: 1 PILL
     Route: 048
     Dates: start: 20080819

REACTIONS (1)
  - PSYCHOMOTOR HYPERACTIVITY [None]
